FAERS Safety Report 11440038 (Version 1)
Quarter: 2015Q3

REPORT INFORMATION
  Report Type: Spontaneous
  Country: US (occurrence: US)
  Receive Date: 20150901
  Receipt Date: 20150901
  Transmission Date: 20151125
  Serious: No
  Sender: FDA-Public Use
  Company Number: US-ROCHE-1115895

PATIENT
  Sex: Female

DRUGS (3)
  1. TELAPREVIR [Suspect]
     Active Substance: TELAPREVIR
     Indication: CHRONIC HEPATITIS C
     Route: 065
  2. PEGASYS [Suspect]
     Active Substance: PEGINTERFERON ALFA-2A
     Indication: CHRONIC HEPATITIS C
     Dosage: PROCLICK INJECTOR
     Route: 058
     Dates: start: 20120824
  3. COPEGUS [Suspect]
     Active Substance: RIBAVIRIN
     Indication: CHRONIC HEPATITIS C
     Route: 048
     Dates: start: 20120824

REACTIONS (8)
  - Burning sensation [Unknown]
  - Heart rate increased [Unknown]
  - Feeling hot [Unknown]
  - Skin burning sensation [Unknown]
  - Asthenia [Unknown]
  - Pruritus generalised [Unknown]
  - Chills [Unknown]
  - Fatigue [Unknown]
